FAERS Safety Report 9437688 (Version 2)
Quarter: 2013Q4

REPORT INFORMATION
  Report Type: Spontaneous
  Country: US (occurrence: US)
  Receive Date: 20130802
  Receipt Date: 20131029
  Transmission Date: 20140711
  Serious: Yes (Death, Hospitalization)
  Sender: FDA-Public Use
  Company Number: US-B.I. PHARMACEUTICALS,INC./RIDGEFIELD-2013-BI-23076BP

PATIENT
  Age: 80 Year
  Sex: Female

DRUGS (6)
  1. PRADAXA [Suspect]
     Indication: ATRIAL FIBRILLATION
     Dosage: 300 MG
     Route: 048
     Dates: start: 2012, end: 20130109
  2. HEPARIN [Suspect]
  3. LISINOPRIL [Concomitant]
  4. MEPRAZOL [Concomitant]
  5. BABY ASPIRIN [Concomitant]
  6. SUPPLEMENTS [Concomitant]

REACTIONS (3)
  - Platelet count decreased [Fatal]
  - Adverse drug reaction [Fatal]
  - Pneumonia [Recovered/Resolved]
